FAERS Safety Report 15144307 (Version 1)
Quarter: 2018Q3

REPORT INFORMATION
  Report Type: Spontaneous
  Country: US (occurrence: US)
  Receive Date: 20180713
  Receipt Date: 20180713
  Transmission Date: 20181010
  Serious: No
  Sender: FDA-Public Use
  Company Number: US-NOVOPROD-596865

PATIENT
  Age: 61 Year
  Sex: Male

DRUGS (3)
  1. INSULIN BASAL [Concomitant]
     Active Substance: INSULIN NOS
     Indication: TYPE 1 DIABETES MELLITUS
     Route: 058
  2. FIASP 3ML PDS290 [Suspect]
     Active Substance: INSULIN ASPART
     Indication: TYPE 1 DIABETES MELLITUS
     Dosage: 20 U, QD
     Route: 058
     Dates: start: 20180403, end: 20180419
  3. FIASP 3ML PDS290 [Suspect]
     Active Substance: INSULIN ASPART
     Dosage: 2 MORE SHOTS AFTER MEALS
     Route: 058
     Dates: start: 201804, end: 201804

REACTIONS (2)
  - Blood glucose increased [Recovering/Resolving]
  - Drug effect delayed [Recovered/Resolved]

NARRATIVE: CASE EVENT DATE: 20180403
